FAERS Safety Report 11799415 (Version 1)
Quarter: 2015Q4

REPORT INFORMATION
  Report Type: Report from Study
  Country: US (occurrence: US)
  Receive Date: 20151203
  Receipt Date: 20151203
  Transmission Date: 20160305
  Serious: No
  Sender: FDA-Public Use
  Company Number: US-AMGEN-USASL2015120309

PATIENT
  Age: 73 Year
  Sex: Female

DRUGS (3)
  1. BYDUREON [Concomitant]
     Active Substance: EXENATIDE
  2. INSULIN [Concomitant]
     Active Substance: INSULIN NOS
  3. REPATHA [Suspect]
     Active Substance: EVOLOCUMAB
     Indication: HYPERCHOLESTEROLAEMIA
     Dosage: 140 MG, Q2WK
     Route: 065
     Dates: start: 2015

REACTIONS (2)
  - Underdose [Unknown]
  - Wrong technique in product usage process [Unknown]

NARRATIVE: CASE EVENT DATE: 2015
